FAERS Safety Report 23066643 (Version 2)
Quarter: 2023Q4

REPORT INFORMATION
  Report Type: Spontaneous
  Country: DE (occurrence: DE)
  Receive Date: 20231016
  Receipt Date: 20231117
  Transmission Date: 20240109
  Serious: Yes (Other)
  Sender: FDA-Public Use
  Company Number: DE-SANOFI-01796471

PATIENT
  Age: 10 Year
  Sex: Male

DRUGS (1)
  1. DUPIXENT [Suspect]
     Active Substance: DUPILUMAB
     Indication: Neurodermatitis
     Dosage: UNK

REACTIONS (4)
  - Sepsis [Unknown]
  - Lymphadenopathy [Unknown]
  - Pyrexia [Unknown]
  - Serum sickness [Unknown]
